FAERS Safety Report 9619301 (Version 3)
Quarter: 2014Q2

REPORT INFORMATION
  Report Type: Report from Study
  Country: JP (occurrence: JP)
  Receive Date: 20131014
  Receipt Date: 20140623
  Transmission Date: 20141212
  Serious: Yes (Hospitalization)
  Sender: FDA-Public Use
  Company Number: JP-ROCHE-1288178

PATIENT
  Sex: Female
  Weight: 57 kg

DRUGS (9)
  1. OMALIZUMAB [Suspect]
     Indication: ASTHMA
     Route: 058
     Dates: start: 20130125
  2. OMALIZUMAB [Suspect]
     Route: 058
     Dates: start: 20130913, end: 20130913
  3. SYMBICORT [Concomitant]
     Route: 065
     Dates: start: 20121207
  4. ADOAIR [Concomitant]
     Route: 065
     Dates: start: 20120622, end: 20121206
  5. KIPRES [Concomitant]
     Route: 065
     Dates: start: 20120622
  6. ALLELOCK [Concomitant]
     Route: 065
     Dates: start: 20120622
  7. THEOLONG [Concomitant]
     Route: 065
     Dates: start: 20120622
  8. IPD [Concomitant]
     Route: 065
     Dates: start: 201201, end: 20131203
  9. PREDONINE [Concomitant]
     Route: 065
     Dates: start: 20131010

REACTIONS (2)
  - Eosinophilia [Recovering/Resolving]
  - White blood cell count increased [Recovering/Resolving]
